FAERS Safety Report 6734072-6 (Version None)
Quarter: 2010Q2

REPORT INFORMATION
  Report Type: 
  Country: None (occurrence: None)
  Receive Date: 20100520
  Receipt Date: 20100510
  Transmission Date: 20101027
  Serious: Yes (Hospitalization, Other)
  Sender: FDA-Public Use
  Company Number: PL-ELI_LILLY_AND_COMPANY-PL201004007913

PATIENT
  Sex: Male
  Weight: 81 kg

DRUGS (4)
  1. PEMETREXED [Suspect]
     Indication: NON-SMALL CELL LUNG CANCER
     Dosage: 970 MG, ONCE EVERY THREE WEEKS
     Route: 042
     Dates: start: 20100408
  2. AG-013736(AXITINIB) [Suspect]
     Indication: NON-SMALL CELL LUNG CANCER
     Dosage: 5 MG, 2/D
     Route: 048
     Dates: start: 20100408
  3. AG-013736(AXITINIB) [Suspect]
     Dosage: 3 MG, UNK
     Dates: start: 20100415, end: 20100415
  4. CISPLATIN [Suspect]
     Indication: NON-SMALL CELL LUNG CANCER
     Dosage: 145 MG, ONCE EVERY THREE WEEKS
     Route: 042
     Dates: start: 20100408

REACTIONS (1)
  - HYPERTENSION [None]
